FAERS Safety Report 6259521-1 (Version None)
Quarter: 2009Q3

REPORT INFORMATION
  Report Type: 
  Country: None (occurrence: None)
  Receive Date: 20090708
  Receipt Date: 20090706
  Transmission Date: 20100115
  Serious: Yes (Other)
  Sender: FDA-Public Use
  Company Number: US-BRISTOL-MYERS SQUIBB COMPANY-14411250

PATIENT
  Sex: Female

DRUGS (6)
  1. ABILIFY [Suspect]
     Indication: BIPOLAR DISORDER
     Dates: end: 20080301
  2. PERCOCET [Suspect]
     Dosage: 1 DOSAGE FORM = 1 DOSE
     Dates: end: 20080301
  3. REBIF [Suspect]
     Indication: MULTIPLE SCLEROSIS
     Dosage: 08-NOV-2004 TO 28-JUN-2005 01-MAY-2006 TO MAR-2008
     Dates: start: 20060501, end: 20080301
  4. ALCOHOL [Suspect]
     Dosage: 1 DOSAGE FORM = 1 DOSE
     Dates: end: 20080301
  5. ECSTASY [Suspect]
     Dosage: 1 DOSAGE FORM = 1 DOSE
     Dates: end: 20080101
  6. TYLENOL (CAPLET) [Concomitant]
     Indication: BACK PAIN

REACTIONS (4)
  - CHLAMYDIAL INFECTION [None]
  - PREGNANCY [None]
  - STILLBIRTH [None]
  - UMBILICAL CORD AROUND NECK [None]
